FAERS Safety Report 10091228 (Version 2)
Quarter: 2014Q2

REPORT INFORMATION
  Report Type: Spontaneous
  Country: US (occurrence: US)
  Receive Date: 20140421
  Receipt Date: 20140421
  Transmission Date: 20141212
  Serious: Yes (Hospitalization)
  Sender: FDA-Public Use
  Company Number: US-GILEAD-2012-0060636

PATIENT
  Sex: Male
  Weight: 97.96 kg

DRUGS (2)
  1. LETAIRIS [Suspect]
     Indication: PULMONARY HYPERTENSION
     Dosage: 10 MG, UNK
     Route: 048
     Dates: start: 20120523, end: 20120725
  2. LETAIRIS [Suspect]
     Indication: INTERSTITIAL LUNG DISEASE

REACTIONS (1)
  - Oedema peripheral [Recovered/Resolved]
